FAERS Safety Report 6354693-2 (Version None)
Quarter: 2009Q3

REPORT INFORMATION
  Report Type: 
  Country: None (occurrence: None)
  Receive Date: 20090914
  Receipt Date: 20090909
  Transmission Date: 20100115
  Serious: Yes (Death, Hospitalization)
  Sender: FDA-Public Use
  Company Number: US-NOVOPROD-291574

PATIENT
  Age: 20 Year
  Sex: Male

DRUGS (13)
  1. NORDITROPIN NORDIFLEX [Suspect]
     Indication: GROWTH HORMONE DEFICIENCY
     Route: 058
     Dates: start: 20090601
  2. NORDITROPIN NORDIFLEX [Suspect]
     Indication: WEIGHT INCREASED
     Dosage: .4 MG, QD
     Route: 058
  3. NORDITROPIN NORDIFLEX [Suspect]
     Dosage: .3 MG, QD
     Route: 058
  4. NORDITROPIN NORDIFLEX [Suspect]
     Dosage: .4 MG, QD
     Route: 058
  5. DDAVP [Concomitant]
     Indication: HYPOPITUITARISM
  6. PREDNISONE [Concomitant]
     Indication: HYPOPITUITARISM
  7. KEPPRA [Concomitant]
     Indication: CONVULSION
  8. LAMICTAL [Concomitant]
     Indication: CONVULSION
  9. LAMICTAL [Concomitant]
  10. LAMICTAL [Concomitant]
  11. LAMICTAL [Concomitant]
     Dates: start: 20090701
  12. LAMICTAL [Concomitant]
     Dosage: UNKNOWN
  13. LAMICTAL [Concomitant]

REACTIONS (8)
  - CONVULSION [None]
  - DEHYDRATION [None]
  - INFLUENZA [None]
  - INSULIN-LIKE GROWTH FACTOR DECREASED [None]
  - INTERNATIONAL NORMALISED RATIO ABNORMAL [None]
  - OROPHARYNGEAL PAIN [None]
  - URINARY TRACT INFECTION [None]
  - WEIGHT DECREASED [None]
